FAERS Safety Report 17555371 (Version 1)
Quarter: 2020Q1

REPORT INFORMATION
  Report Type: Spontaneous
  Country: GB (occurrence: GB)
  Receive Date: 20200318
  Receipt Date: 20200318
  Transmission Date: 20200409
  Serious: Yes (Hospitalization, Other)
  Sender: FDA-Public Use
  Company Number: GB-VERTEX PHARMACEUTICALS-2020-002685

PATIENT
  Age: 30 Year
  Sex: Female

DRUGS (16)
  1. SALBUTAMOL [Concomitant]
     Active Substance: ALBUTEROL
     Dosage: 5 MG,NEB, QDS, PRN
  2. DOCUSATE SOD [Concomitant]
     Dosage: 100 MG, BID
     Route: 048
  3. PARAVIT [Concomitant]
     Active Substance: ACETAMINOPHEN\ASCORBIC ACID
     Dosage: 2 CAP, UNK, QD
     Route: 048
     Dates: start: 20181018
  4. HYPERTONIC SALINE SOLUTION [Concomitant]
     Active Substance: SODIUM CHLORIDE
     Dosage: 4 MILLILITER, NEB, BID
  5. CREON [Concomitant]
     Active Substance: PANCRELIPASE AMYLASE\PANCRELIPASE LIPASE\PANCRELIPASE PROTEASE
     Dosage: 10000 UNK
     Route: 048
     Dates: start: 20191217
  6. E FLOW [Concomitant]
     Dosage: UNK
  7. SYMBICORT [Concomitant]
     Active Substance: BUDESONIDE\FORMOTEROL FUMARATE DIHYDRATE
     Dosage: UNK, 200/6 2 INH DPI, BID
  8. SYMKEVI [Suspect]
     Active Substance: IVACAFTOR\TEZACAFTOR
     Indication: CYSTIC FIBROSIS
     Dosage: 100MG TEZACAFTOR/150MG IVACAFTOR AM
     Route: 048
     Dates: start: 20190528
  9. ZOPICLONE [Concomitant]
     Active Substance: ZOPICLONE
     Dosage: 3.75 MG ON PRN
     Route: 048
  10. PRUCALOPRIDE [Concomitant]
     Active Substance: PRUCALOPRIDE
     Dosage: 2 MG, QD
     Route: 048
     Dates: start: 20190822
  11. KALYDECO [Suspect]
     Active Substance: IVACAFTOR
     Indication: CYSTIC FIBROSIS
     Dosage: 150MG IVACAFTOR PM
     Route: 048
     Dates: start: 20190528
  12. TIOTROPIUM [Concomitant]
     Active Substance: TIOTROPIUM
     Dosage: 5,MICG, DPI UNK
     Dates: start: 20190715
  13. OXYCODONE [Concomitant]
     Active Substance: OXYCODONE
     Dosage: 2.5 MILLIGRAM, 4-6 HRLY
     Route: 048
  14. OMEPRAZOLE. [Concomitant]
     Active Substance: OMEPRAZOLE
     Dosage: 20 MG, BID
     Route: 048
  15. COLOMYCIN [COLISTIN SULFATE] [Concomitant]
     Active Substance: COLISTIN SULFATE
     Dosage: 2 MU,  BID
     Dates: start: 20200213
  16. RANITIDINE. [Concomitant]
     Active Substance: RANITIDINE
     Dosage: 150 MG, BID
     Route: 048

REACTIONS (4)
  - Infective pulmonary exacerbation of cystic fibrosis [Unknown]
  - Respiratory failure [Not Recovered/Not Resolved]
  - Pulmonary function test decreased [Not Recovered/Not Resolved]
  - Drug ineffective [Unknown]

NARRATIVE: CASE EVENT DATE: 2019
